FAERS Safety Report 6978889-1 (Version None)
Quarter: 2010Q3

REPORT INFORMATION
  Report Type: 
  Country: None (occurrence: None)
  Receive Date: 20100913
  Receipt Date: 20100831
  Transmission Date: 20110219
  Serious: Yes (Hospitalization)
  Sender: FDA-Public Use
  Company Number: CA-JNJFOC-20100903236

PATIENT
  Age: 77 Year
  Sex: Female

DRUGS (1)
  1. SODIUM/POTASSIUM PHOSPHATE [Suspect]
     Indication: BARIUM ENEMA
     Dosage: 90 ML OF FLEET PHOSPHOSODA
     Route: 048

REACTIONS (7)
  - BLOOD CREATININE INCREASED [None]
  - ELECTROCARDIOGRAM QT PROLONGED [None]
  - HYPERPHOSPHATAEMIA [None]
  - HYPOCALCAEMIA [None]
  - METABOLIC ACIDOSIS [None]
  - MUSCLE SPASMS [None]
  - PARAESTHESIA [None]
